FAERS Safety Report 6659667-X (Version None)
Quarter: 2010Q1

REPORT INFORMATION
  Report Type: 
  Country: None (occurrence: None)
  Receive Date: 20100325
  Receipt Date: 20100310
  Transmission Date: 20100710
  Serious: Yes (Hospitalization)
  Sender: FDA-Public Use
  Company Number: IDA-00340

PATIENT
  Sex: Female

DRUGS (8)
  1. PROPRANOLOL [Suspect]
     Indication: POSTOPERATIVE CARE
     Dosage: 5 MG DAILY, ORAL FORMULATION: UNKNOWN
     Dates: start: 20100301, end: 20100301
  2. ASPIRIN [Concomitant]
  3. CAPTOPRIL [Concomitant]
  4. FUROSEMIDE [Concomitant]
  5. GAVISCON CHEWABLE TABLETS (ALGINIC ACID, ALUMINIUM HYDROXIDE GEL, DRIE [Concomitant]
  6. (MELATONIN) [Concomitant]
  7. RANITIDINE HCL [Concomitant]
  8. (SPIRONOLACTONE) [Concomitant]

REACTIONS (2)
  - BRADYCARDIA [None]
  - PERIPHERAL CIRCULATORY FAILURE [None]
